FAERS Safety Report 8373236-5 (Version None)
Quarter: 2012Q2

REPORT INFORMATION
  Report Type: 
  Country: None (occurrence: None)
  Receive Date: 20120521
  Receipt Date: 20120515
  Transmission Date: 20120825
  Serious: Yes (Hospitalization, Other)
  Sender: FDA-Public Use
  Company Number: US-BAYER-2012-049146

PATIENT
  Age: 30 Year
  Sex: Female
  Weight: 81.179 kg

DRUGS (12)
  1. METHYLPREDNISOLONE [Concomitant]
     Dosage: 4 MG, DOSPAK 21S
     Route: 048
     Dates: start: 20080616
  2. ALBUTEROL [Concomitant]
     Indication: ASTHMA
     Dosage: UNK
     Dates: start: 20080915
  3. YASMIN [Suspect]
  4. LEXAPRO [Concomitant]
     Dosage: 10 MG, DAILY
     Route: 048
     Dates: start: 20080618, end: 20080915
  5. YAZ [Suspect]
  6. ETODOLAC [Concomitant]
     Dosage: 400 MG, BID WITHFOOD
     Route: 048
     Dates: start: 20080616
  7. ALLEGRA [Concomitant]
     Dosage: 180 MG,DAILY
     Route: 048
     Dates: start: 20080609, end: 20080915
  8. PROAIR HFA [Concomitant]
     Dosage: 8.5 G, 2 PUFFS 4 TIMES A DAY AS NEEDED
     Route: 048
     Dates: start: 20080825
  9. HYDROCODONE BITARTRATE AND ACETAMINOPHEN [Concomitant]
     Indication: PAIN
     Dosage: 5MG/500 MG, 1 EVERY 6 HOURS AS NEEDED
     Route: 048
     Dates: start: 20080617
  10. METOPROLOL [Concomitant]
     Dosage: 100 MG, UNK
     Route: 048
     Dates: start: 20080613, end: 20080911
  11. DROSPIRENONE AND ETHINYL ESTRADIOL [Suspect]
  12. METOPROLOL [Concomitant]
     Dosage: 150 MG, QD
     Route: 048
     Dates: start: 20080820, end: 20080915

REACTIONS (2)
  - PULMONARY EMBOLISM [None]
  - DEEP VEIN THROMBOSIS [None]
